FAERS Safety Report 4352972-1 (Version None)
Quarter: 2004Q2

REPORT INFORMATION
  Report Type: 
  Country: None (occurrence: None)
  Receive Date: 20040504
  Receipt Date: 20030910
  Transmission Date: 20050107
  Serious: Yes (Hospitalization)
  Sender: FDA-Public Use
  Company Number: US-MERCK-0309USA01259

PATIENT
  Age: 57 Year
  Sex: Male
  Weight: 87 kg

DRUGS (7)
  1. ASPIRIN [Suspect]
     Route: 065
     Dates: end: 20030101
  2. ASPIRIN [Suspect]
     Route: 065
     Dates: start: 20030101, end: 20030825
  3. ZETIA [Suspect]
     Indication: HYPERCHOLESTEROLAEMIA
     Route: 048
     Dates: start: 20030129, end: 20030825
  4. ZETIA [Suspect]
     Indication: HYPERLIPIDAEMIA
     Route: 048
     Dates: start: 20030129, end: 20030825
  5. METOPROLOL SUCCINATE [Suspect]
     Route: 065
     Dates: end: 20030825
  6. NIASPAN [Suspect]
     Indication: HYPERLIPIDAEMIA
     Route: 065
     Dates: start: 20030129, end: 20030825
  7. ZOCOR [Suspect]
     Indication: HYPERLIPIDAEMIA
     Route: 048
     Dates: end: 20030825

REACTIONS (2)
  - CORONARY ARTERY DISEASE [None]
  - HEPATITIS [None]
